FAERS Safety Report 5305739-1 (Version None)
Quarter: 2007Q2

REPORT INFORMATION
  Report Type: 
  Country: None (occurrence: None)
  Receive Date: 20070416
  Receipt Date: 20070404
  Transmission Date: 20071010
  Serious: Yes (Hospitalization)
  Sender: FDA-Public Use
  Company Number: 154843ISR

PATIENT
  Age: 28 Year
  Sex: Female

DRUGS (1)
  1. NITROFURANTOIN [Suspect]
     Dosage: 100 MG ORAL
     Route: 048
     Dates: start: 20070212, end: 20070213

REACTIONS (6)
  - ABORTION SPONTANEOUS [None]
  - DRUG EXPOSURE DURING PREGNANCY [None]
  - HEADACHE [None]
  - MALAISE [None]
  - NAUSEA [None]
  - VOMITING [None]
